FAERS Safety Report 5684616-0 (Version None)
Quarter: 2008Q1

REPORT INFORMATION
  Report Type: 
  Country: None (occurrence: None)
  Receive Date: 20080328
  Receipt Date: 20070410
  Transmission Date: 20080703
  Serious: Yes (Other)
  Sender: FDA-Public Use
  Company Number: US-BRISTOL-MYERS SQUIBB COMPANY-13744867

PATIENT
  Age: 73 Year
  Sex: Male

DRUGS (2)
  1. ERBITUX [Suspect]
     Indication: NEOPLASM MALIGNANT
     Dates: start: 20070403, end: 20070403
  2. RADIATION THERAPY [Concomitant]
     Dates: start: 20070328

REACTIONS (1)
  - RASH MACULO-PAPULAR [None]
